FAERS Safety Report 10904814 (Version 2)
Quarter: 2017Q1

REPORT INFORMATION
  Report Type: Spontaneous
  Country: FR (occurrence: FR)
  Receive Date: 20150306
  Receipt Date: 20170301
  Transmission Date: 20170428
  Serious: Yes (Hospitalization, Other)
  Sender: FDA-Public Use
  Company Number: FR-H14001-15-00327

PATIENT
  Age: 61 Year
  Sex: Female
  Weight: 62 kg

DRUGS (12)
  1. GEMTUZUMAB OZOGAMICIN [Suspect]
     Active Substance: GEMTUZUMAB OZOGAMICIN
     Indication: ACUTE MYELOID LEUKAEMIA
     Route: 041
     Dates: start: 20080128, end: 20080203
  2. ARACYTINE [Suspect]
     Active Substance: CYTARABINE
     Route: 041
     Dates: start: 20080215, end: 20080217
  3. CERUBIDINE [Suspect]
     Active Substance: DAUNORUBICIN HYDROCHLORIDE
     Route: 041
     Dates: start: 20080215, end: 20080216
  4. CERUBIDINE [Suspect]
     Active Substance: DAUNORUBICIN HYDROCHLORIDE
     Route: 041
     Dates: start: 20080418, end: 20080419
  5. ARACYTINE [Suspect]
     Active Substance: CYTARABINE
     Indication: ACUTE MYELOID LEUKAEMIA
     Route: 041
     Dates: start: 20080128, end: 20080203
  6. ARACYTINE [Suspect]
     Active Substance: CYTARABINE
     Route: 065
     Dates: start: 20080604
  7. CERUBIDINE [Suspect]
     Active Substance: DAUNORUBICIN HYDROCHLORIDE
     Indication: ACUTE MYELOID LEUKAEMIA
     Route: 041
     Dates: start: 20080128, end: 20080203
  8. ARACYTINE [Suspect]
     Active Substance: CYTARABINE
     Route: 041
     Dates: start: 20080418, end: 20080421
  9. CORDARONE [Suspect]
     Active Substance: AMIODARONE HYDROCHLORIDE
     Indication: PRODUCT USED FOR UNKNOWN INDICATION
     Route: 048
     Dates: start: 20080119, end: 20080414
  10. NOXAFIL [Suspect]
     Active Substance: POSACONAZOLE
     Indication: PRODUCT USED FOR UNKNOWN INDICATION
     Route: 065
     Dates: start: 20080228, end: 20080407
  11. CERUBIDINE [Suspect]
     Active Substance: DAUNORUBICIN HYDROCHLORIDE
     Route: 065
     Dates: start: 20080604
  12. CARDIOXANE [Concomitant]
     Active Substance: DEXRAZOXANE HYDROCHLORIDE
     Indication: PRODUCT USED FOR UNKNOWN INDICATION
     Route: 065

REACTIONS (9)
  - Enterobacter test positive [Unknown]
  - Immune thrombocytopenic purpura [Recovered/Resolved]
  - Cholestasis [Recovering/Resolving]
  - Conjunctivitis [Recovering/Resolving]
  - Fall [Recovered/Resolved]
  - Eye swelling [Recovering/Resolving]
  - Klebsiella sepsis [Recovered/Resolved]
  - Loss of consciousness [Recovered/Resolved]
  - Febrile bone marrow aplasia [Recovered/Resolved]

NARRATIVE: CASE EVENT DATE: 2008
